FAERS Safety Report 4349922-0 (Version None)
Quarter: 2004Q2

REPORT INFORMATION
  Report Type: 
  Country: None (occurrence: None)
  Receive Date: 20040428
  Receipt Date: 20040428
  Transmission Date: 20050107
  Serious: Yes (Other)
  Sender: FDA-Public Use
  Company Number: None

PATIENT
  Sex: Female

DRUGS (1)
  1. SEPTOCAINE [Suspect]

REACTIONS (7)
  - AGEUSIA [None]
  - DYSARTHRIA [None]
  - MUSCLE TIGHTNESS [None]
  - NERVE INJURY [None]
  - PARALYSIS [None]
  - SINUSITIS [None]
  - TRISMUS [None]
